FAERS Safety Report 7918333-0 (Version None)
Quarter: 2011Q4

REPORT INFORMATION
  Report Type: 
  Country: None (occurrence: None)
  Receive Date: 20111116
  Receipt Date: 20111114
  Transmission Date: 20120403
  Serious: Yes (Other)
  Sender: FDA-Public Use
  Company Number: JP-PFIZER INC-2011256290

PATIENT
  Age: 84 Year
  Sex: Male

DRUGS (11)
  1. DOXAZOSIN MESYLATE [Suspect]
     Dosage: 2 MG, DAILY
     Route: 048
     Dates: end: 20111008
  2. PLAVIX [Concomitant]
     Dosage: UNK
  3. CEPHADOL [Concomitant]
     Dosage: UNK
  4. URIEF [Concomitant]
     Dosage: UNK
  5. OMEPRAZOLE [Concomitant]
     Dosage: UNK
  6. LIPIDIL [Concomitant]
     Dosage: UNK
  7. MAGNESIUM OXIDE [Concomitant]
     Dosage: UNK
  8. FUROSEMIDE [Concomitant]
     Dosage: UNK
  9. OLMESARTAN MEDOXOMIL [Concomitant]
     Dosage: UNK
  10. OPALMON [Concomitant]
     Dosage: UNK
  11. VERAPAMIL [Concomitant]
     Dosage: UNK

REACTIONS (2)
  - RENAL IMPAIRMENT [None]
  - BLOOD POTASSIUM INCREASED [None]
